FAERS Safety Report 11469434 (Version 2)
Quarter: 2015Q3

REPORT INFORMATION
  Report Type: Spontaneous
  Country: US (occurrence: US)
  Receive Date: 20150903
  Receipt Date: 20150903
  Transmission Date: 20151125
  Serious: No
  Sender: FDA-Public Use
  Company Number: US-ELI_LILLY_AND_COMPANY-US201110001458

PATIENT
  Age: 45 Year
  Sex: Female

DRUGS (2)
  1. CYMBALTA [Suspect]
     Active Substance: DULOXETINE HYDROCHLORIDE
     Indication: DEPRESSION
     Dosage: 60 MG, QD
     Dates: start: 2007, end: 201001
  2. CYMBALTA [Suspect]
     Active Substance: DULOXETINE HYDROCHLORIDE
     Dosage: 30 MG, UNK
     Dates: end: 201109

REACTIONS (8)
  - Anaemia [Unknown]
  - Laboratory test abnormal [Unknown]
  - Stomatitis [Recovering/Resolving]
  - Drug withdrawal syndrome [Unknown]
  - Infection [Unknown]
  - Adverse event [Unknown]
  - Feeling abnormal [Unknown]
  - Weight increased [Unknown]
